FAERS Safety Report 5906028-4 (Version None)
Quarter: 2008Q4

REPORT INFORMATION
  Report Type: 
  Country: None (occurrence: None)
  Receive Date: 20081002
  Receipt Date: 20080919
  Transmission Date: 20090506
  Serious: Yes (Death, Life-Threatening, Hospitalization)
  Sender: FDA-Public Use
  Company Number: CH-AMGEN-UK292160

PATIENT
  Sex: Female

DRUGS (9)
  1. PANITUMUMAB [Suspect]
     Indication: SQUAMOUS CELL CARCINOMA
     Route: 042
     Dates: start: 20080625, end: 20080625
  2. CISPLATIN [Concomitant]
     Route: 042
     Dates: start: 20080625
  3. CEFEPIME [Concomitant]
     Route: 042
  4. METRONIDAZOLE [Concomitant]
  5. MAGNESIUM SULFATE [Concomitant]
  6. POTASSIUM CHLORIDE [Concomitant]
     Route: 042
  7. DALTEPARIN SODIUM [Concomitant]
  8. FLUOROURACIL [Concomitant]
     Route: 042
     Dates: start: 20080625, end: 20080627
  9. FLUOROURACIL [Concomitant]
     Route: 042
     Dates: start: 20080628

REACTIONS (7)
  - BACK PAIN [None]
  - DECREASED APPETITE [None]
  - FEBRILE NEUTROPENIA [None]
  - HYPOTENSION [None]
  - MYOCARDIAL INFARCTION [None]
  - PNEUMONIA [None]
  - SEPSIS [None]
